FAERS Safety Report 8142041-7 (Version None)
Quarter: 2012Q1

REPORT INFORMATION
  Report Type: 
  Country: None (occurrence: None)
  Receive Date: 20120216
  Receipt Date: 20120208
  Transmission Date: 20120608
  Serious: Yes (Other)
  Sender: FDA-Public Use
  Company Number: CA-MERCK-1202USA01376

PATIENT
  Age: 85 Year
  Sex: Female

DRUGS (1)
  1. FOSAMAX [Suspect]
     Indication: OSTEOPOROSIS
     Route: 048
     Dates: start: 20020101, end: 20070101

REACTIONS (7)
  - BODY HEIGHT DECREASED [None]
  - HIP FRACTURE [None]
  - BONE LOSS [None]
  - WEIGHT DECREASED [None]
  - WRIST FRACTURE [None]
  - RIB FRACTURE [None]
  - INTERVERTEBRAL DISC DEGENERATION [None]
